FAERS Safety Report 17785394 (Version 1)
Quarter: 2020Q2

REPORT INFORMATION
  Report Type: Other
  Country: US (occurrence: US)
  Receive Date: 20200513
  Receipt Date: 20200513
  Transmission Date: 20200714
  Serious: No
  Sender: FDA-Public Use
  Company Number: US-SIGA TECHNOLOGIES, INC.-2083756

PATIENT
  Age: 26 Year
  Sex: Female

DRUGS (4)
  1. TPOXX [Suspect]
     Active Substance: TECOVIRIMAT
     Indication: VACCINIA VIRUS INFECTION
     Route: 048
     Dates: start: 201901, end: 201901
  2. SINGLE 6,000 IU/KG DOSE OF INTRAVENOUS VACCINIA IMMUNOGLOBULIN (VIGIV) [Concomitant]
     Route: 042
     Dates: start: 201901, end: 201901
  3. CLINDAMYCIN. [Concomitant]
     Active Substance: CLINDAMYCIN
     Dates: start: 201901, end: 201910
  4. CEPHALEXIN. [Concomitant]
     Active Substance: CEPHALEXIN
     Dates: start: 201901, end: 201901

REACTIONS (6)
  - Pain [Recovered/Resolved]
  - Fatigue [Recovered/Resolved]
  - Decreased appetite [Recovered/Resolved]
  - Myalgia [Recovered/Resolved]
  - Nausea [Recovered/Resolved]
  - Pruritus [Recovered/Resolved]

NARRATIVE: CASE EVENT DATE: 20190101
